FAERS Safety Report 4712519-4 (Version None)
Quarter: 2005Q2

REPORT INFORMATION
  Report Type: 
  Country: None (occurrence: None)
  Receive Date: 20050629
  Receipt Date: 20050414
  Transmission Date: 20051028
  Serious: No
  Sender: FDA-Public Use
  Company Number: 05P-163-0297377-00

PATIENT
  Age: 60 Year

DRUGS (8)
  1. HUMIRA [Suspect]
     Indication: RHEUMATOID ARTHRITIS
     Dosage: 40 MG, 1 IN 1 WK, SUBCUTANEOUS
     Route: 058
     Dates: start: 20040101
  2. LEFLUNOMIDE [Concomitant]
  3. URSOGIOL [Concomitant]
  4. VYTORIN [Concomitant]
  5. CALCIUM GLUCONATE [Concomitant]
  6. IMIPRAMINE [Concomitant]
  7. TEMEPORSAN [Concomitant]
  8. LEVOTHYROXINE SODIUM [Concomitant]

REACTIONS (4)
  - FUNGAL INFECTION [None]
  - GLOSSODYNIA [None]
  - STOMATITIS [None]
  - SWOLLEN TONGUE [None]
